FAERS Safety Report 4868601-4 (Version None)
Quarter: 2005Q4

REPORT INFORMATION
  Report Type: 
  Country: None (occurrence: None)
  Receive Date: 20051223
  Receipt Date: 20051215
  Transmission Date: 20060501
  Serious: Yes (Other)
  Sender: FDA-Public Use
  Company Number: 2005169533

PATIENT
  Sex: Male
  Weight: 81.6475 kg

DRUGS (4)
  1. VIAGRA [Suspect]
     Indication: ERECTILE DYSFUNCTION
     Dosage: 100 MG (100 MG AS NECESSARY) ORAL
     Route: 048
     Dates: start: 20050401, end: 20050101
  2. MOTRIN [Concomitant]
  3. TUMS (CALCIUM CARBONATE) [Concomitant]
  4. ASPIRIN [Concomitant]

REACTIONS (2)
  - MUSCULOSKELETAL DISCOMFORT [None]
  - OSTEONECROSIS [None]
